FAERS Safety Report 8335548-0 (Version None)
Quarter: 2012Q2

REPORT INFORMATION
  Report Type: 
  Country: None (occurrence: None)
  Receive Date: 20120503
  Receipt Date: 20120418
  Transmission Date: 20120825
  Serious: Yes (Other)
  Sender: FDA-Public Use
  Company Number: CHPA2012US009643

PATIENT
  Age: 69 Year
  Sex: Male

DRUGS (2)
  1. BENEFIBER SUGAR FREE [Suspect]
     Indication: NUTRITIONAL SUPPORT
     Dosage: 3 DF, QD
     Route: 048
     Dates: start: 20120310
  2. BENEFIBER SUGAR FREE [Suspect]
     Dosage: 1 DF, TID
     Route: 048

REACTIONS (9)
  - FREQUENT BOWEL MOVEMENTS [None]
  - HAEMORRHOIDS [None]
  - FOOD POISONING [None]
  - DIARRHOEA [None]
  - UNDERDOSE [None]
  - FLATULENCE [None]
  - NAUSEA [None]
  - THERAPEUTIC RESPONSE UNEXPECTED [None]
  - ABDOMINAL PAIN UPPER [None]
